FAERS Safety Report 25229541 (Version 2)
Quarter: 2025Q2

REPORT INFORMATION
  Report Type: Spontaneous
  Country: GB (occurrence: GB)
  Receive Date: 20250423
  Receipt Date: 20250423
  Transmission Date: 20250716
  Serious: Yes (Other)
  Sender: TEVA
  Company Number: GB-MHRA-TPP3716998C16344779YC1744808315157

PATIENT
  Age: 84 Year
  Sex: Female
  Weight: 64 kg

DRUGS (21)
  1. PRAVASTATIN [Suspect]
     Active Substance: PRAVASTATIN
     Indication: Ill-defined disorder
     Dosage: DAILY DOSE: 20MG
     Route: 065
     Dates: start: 20250116
  2. PREDNISOLONE [Concomitant]
     Active Substance: PREDNISOLONE
     Indication: Ill-defined disorder
     Dosage: DAILY DOSE: 30MG
     Route: 065
     Dates: start: 20250416
  3. FERROUS SULFATE [Concomitant]
     Active Substance: FERROUS SULFATE
     Indication: Ill-defined disorder
     Dosage: DAILY DOSE: 1 DOSAGE FORM
     Route: 065
     Dates: start: 20250116
  4. ISOSORBIDE MONONITRATE [Concomitant]
     Active Substance: ISOSORBIDE MONONITRATE
     Indication: Ill-defined disorder
     Dosage: DAILY DOSE: 2 DOSAGE FORM (8AM AND 2PM)
     Route: 065
     Dates: start: 20250116
  5. NACSYS [Concomitant]
     Indication: Ill-defined disorder
     Dosage: DAILY DOSE: 1 DOSAGE FORM
     Route: 065
     Dates: start: 20250226, end: 20250328
  6. AMLODIPINE [Concomitant]
     Active Substance: AMLODIPINE BESYLATE
     Indication: Ill-defined disorder
     Dosage: DAILY DOSE: 1 DOSAGE FORM
     Route: 065
     Dates: start: 20250116
  7. CALCIUM CARBONATE\CHOLECALCIFEROL [Concomitant]
     Active Substance: CALCIUM CARBONATE\CHOLECALCIFEROL
     Indication: Ill-defined disorder
     Dosage: DAILY DOSE: 1 DOSAGE FORM
     Route: 065
     Dates: start: 20250116
  8. TROSPIUM [Concomitant]
     Active Substance: TROSPIUM
     Indication: Ill-defined disorder
     Route: 065
     Dates: start: 20250116
  9. PREGABALIN [Concomitant]
     Active Substance: PREGABALIN
     Indication: Ill-defined disorder
     Route: 065
     Dates: start: 20250116
  10. BECLOMETHASONE DIPROPIONATE\FORMOTEROL FUMARATE\GLYCOPYRROLATE [Concomitant]
     Active Substance: BECLOMETHASONE DIPROPIONATE\FORMOTEROL FUMARATE\GLYCOPYRROLATE
     Indication: Ill-defined disorder
     Dates: start: 20250226
  11. BECLOMETHASONE DIPROPIONATE\FORMOTEROL FUMARATE\GLYCOPYRROLATE [Concomitant]
     Active Substance: BECLOMETHASONE DIPROPIONATE\FORMOTEROL FUMARATE\GLYCOPYRROLATE
     Indication: Ill-defined disorder
     Dosage: DAILY DOSE: 4 DOSAGE FORM
     Route: 065
     Dates: start: 20250226
  12. PANTOPRAZOLE [Concomitant]
     Active Substance: PANTOPRAZOLE
     Indication: Ill-defined disorder
     Dosage: DAILY DOSE: 2 DOSAGE FORM
     Route: 065
     Dates: start: 20250321
  13. METFORMIN [Concomitant]
     Active Substance: METFORMIN HYDROCHLORIDE
     Indication: Ill-defined disorder
     Dosage: DAILY DOSE: 4 DOSAGE FORM
     Route: 065
     Dates: start: 20250116
  14. RAMIPRIL [Concomitant]
     Active Substance: RAMIPRIL
     Indication: Ill-defined disorder
     Dosage: DAILY DOSE: 1 DOSAGE FORM
     Route: 065
     Dates: start: 20250116
  15. SIMPLA [Concomitant]
     Indication: Ill-defined disorder
     Dates: start: 20230210
  16. SIMPLA [Concomitant]
     Indication: Ill-defined disorder
     Route: 065
     Dates: start: 20230210
  17. CLOPIDOGREL [Concomitant]
     Active Substance: CLOPIDOGREL BISULFATE
     Indication: Ill-defined disorder
     Dosage: DAILY DOSE: 1 DOSAGE FORM
     Route: 065
     Dates: start: 20250116
  18. LIBRA [Concomitant]
     Indication: Ill-defined disorder
     Route: 065
     Dates: start: 20230316
  19. ACETAMINOPHEN\CODEINE PHOSPHATE [Concomitant]
     Active Substance: ACETAMINOPHEN\CODEINE PHOSPHATE
     Indication: Ill-defined disorder
     Dates: start: 20250127, end: 20250210
  20. ACETAMINOPHEN\CODEINE PHOSPHATE [Concomitant]
     Active Substance: ACETAMINOPHEN\CODEINE PHOSPHATE
     Indication: Ill-defined disorder
     Route: 065
     Dates: start: 20250127, end: 20250210
  21. AMOXICILLIN [Concomitant]
     Active Substance: AMOXICILLIN
     Indication: Ill-defined disorder
     Route: 065
     Dates: start: 20250416

REACTIONS (2)
  - Wheezing [Unknown]
  - Pruritus [Unknown]
